FAERS Safety Report 6446355-8 (Version None)
Quarter: 2009Q4

REPORT INFORMATION
  Report Type: 
  Country: None (occurrence: None)
  Receive Date: 20091110
  Receipt Date: 20090916
  Transmission Date: 20100525
  Serious: No
  Sender: FDA-Public Use
  Company Number: 1000008907

PATIENT
  Age: 54 Year
  Sex: Female

DRUGS (10)
  1. SAVELLA [Suspect]
     Indication: PAIN
     Dosage: SEE IMAGE
     Route: 048
     Dates: start: 20090716, end: 20090716
  2. SAVELLA [Suspect]
     Indication: PAIN
     Dosage: SEE IMAGE
     Route: 048
     Dates: start: 20090717, end: 20090718
  3. SAVELLA [Suspect]
     Indication: PAIN
     Dosage: SEE IMAGE
     Route: 048
     Dates: start: 20090719, end: 20090722
  4. SAVELLA [Suspect]
     Indication: PAIN
     Dosage: SEE IMAGE
     Route: 048
     Dates: start: 20090723
  5. VIVELLE-DOT [Concomitant]
  6. ESTRADIOL [Concomitant]
  7. PROGESTERONE [Concomitant]
  8. HYDROCORT [Concomitant]
  9. NATURE-THROID [Concomitant]
  10. ATIVAN [Concomitant]

REACTIONS (10)
  - CONSTIPATION [None]
  - DIZZINESS [None]
  - FATIGUE [None]
  - HEADACHE [None]
  - HOT FLUSH [None]
  - HYPERHIDROSIS [None]
  - HYPOAESTHESIA [None]
  - PARAESTHESIA [None]
  - PRURITUS [None]
  - VISION BLURRED [None]
